FAERS Safety Report 14706218 (Version 9)
Quarter: 2025Q3

REPORT INFORMATION
  Report Type: Spontaneous
  Country: AU (occurrence: AU)
  Receive Date: 20180402
  Receipt Date: 20250730
  Transmission Date: 20251020
  Serious: Yes (Hospitalization)
  Sender: CELLTRION
  Company Number: AU-CELLTRION INC.-2018AU018943

PATIENT

DRUGS (8)
  1. INFLECTRA [Suspect]
     Active Substance: INFLIXIMAB-DYYB
     Indication: Neurosarcoidosis
     Route: 042
     Dates: start: 201705
  2. INFLECTRA [Suspect]
     Active Substance: INFLIXIMAB-DYYB
     Route: 042
  3. INFLECTRA [Suspect]
     Active Substance: INFLIXIMAB-DYYB
     Route: 042
  4. INFLECTRA [Suspect]
     Active Substance: INFLIXIMAB-DYYB
     Route: 042
  5. MYCOPHENOLATE MOFETIL [Concomitant]
     Active Substance: MYCOPHENOLATE MOFETIL
  6. PREDNISOLONE [Concomitant]
     Active Substance: PREDNISOLONE
  7. PREDNISOLONE [Concomitant]
     Active Substance: PREDNISOLONE
  8. PREDNISOLONE [Concomitant]
     Active Substance: PREDNISOLONE

REACTIONS (3)
  - Hydrocephalus [Not Recovered/Not Resolved]
  - Disease progression [Not Recovered/Not Resolved]
  - Off label use [Unknown]

NARRATIVE: CASE EVENT DATE: 20171201
